FAERS Safety Report 18101374 (Version 1)
Quarter: 2020Q3

REPORT INFORMATION
  Report Type: Spontaneous
  Country: RO (occurrence: RO)
  Receive Date: 20200801
  Receipt Date: 20200801
  Transmission Date: 20201103
  Serious: Yes (Other)
  Sender: FDA-Public Use
  Company Number: RO-ACCORD-189876

PATIENT
  Age: 50 Year
  Sex: Male

DRUGS (2)
  1. CARBOPLATIN. [Suspect]
     Active Substance: CARBOPLATIN
     Indication: LUNG ADENOCARCINOMA STAGE IV
     Dosage: GIVEN FOR 6 CYCLES
     Dates: start: 20170906, end: 20180115
  2. GEMCITABINE/GEMCITABINE HYDROCHLORIDE [Suspect]
     Active Substance: GEMCITABINE\GEMCITABINE HYDROCHLORIDE
     Indication: NON-SMALL CELL LUNG CANCER
     Dosage: GIVEN FOR 6 CYCLES
     Dates: start: 20170906, end: 20180115

REACTIONS (2)
  - Disease progression [Unknown]
  - Haematotoxicity [Unknown]
